FAERS Safety Report 21463940 (Version 2)
Quarter: 2023Q1

REPORT INFORMATION
  Report Type: Spontaneous
  Country: ES (occurrence: ES)
  Receive Date: 20221017
  Receipt Date: 20230117
  Transmission Date: 20230417
  Serious: Yes (Other)
  Sender: FDA-Public Use
  Company Number: ES-CELLTRION INC.-2022ES016459

PATIENT

DRUGS (2)
  1. RITUXIMAB [Suspect]
     Active Substance: RITUXIMAB
     Indication: Acquired Von Willebrand^s disease
     Dosage: UNK UNK, CYCLIC (6 CYCLES); FORMULATION UNKNOWN
  2. BENDAMUSTINE HYDROCHLORIDE [Suspect]
     Active Substance: BENDAMUSTINE HYDROCHLORIDE
     Indication: Acquired Von Willebrand^s disease
     Dosage: UNK UNK, CYCLIC (1ST LINE OF TREATMENT, 6 CYCLES)
     Route: 042

REACTIONS (5)
  - Eye contusion [Unknown]
  - Eye haemorrhage [Unknown]
  - Haematoma muscle [Unknown]
  - Off label use [Unknown]
  - Off label use [Unknown]
